FAERS Safety Report 15858183 (Version 1)
Quarter: 2019Q1

REPORT INFORMATION
  Report Type: Spontaneous
  Country: US (occurrence: US)
  Receive Date: 20190123
  Receipt Date: 20190123
  Transmission Date: 20190417
  Serious: Yes (Other)
  Sender: FDA-Public Use
  Company Number: PHHY2019US008595

PATIENT
  Age: 87 Year
  Sex: Male

DRUGS (2)
  1. RIVAROXABAN [Suspect]
     Active Substance: RIVAROXABAN
     Indication: ATRIAL FIBRILLATION
     Dosage: 20 MG, QD
     Route: 065
  2. AMIODARONE [Suspect]
     Active Substance: AMIODARONE
     Indication: VENTRICULAR FIBRILLATION
     Dosage: 200 MG, QD
     Route: 065

REACTIONS (11)
  - Cardiac tamponade [Recovered/Resolved]
  - Pulse abnormal [Unknown]
  - Chest pain [Unknown]
  - Jugular vein distension [Unknown]
  - Acute kidney injury [Recovered/Resolved]
  - Hypoperfusion [Unknown]
  - Dyspnoea [Unknown]
  - Lactic acidosis [Unknown]
  - Dizziness [Unknown]
  - Leukocytosis [Unknown]
  - Hepatic enzyme increased [Unknown]
